FAERS Safety Report 23728481 (Version 2)
Quarter: 2024Q2

REPORT INFORMATION
  Report Type: Spontaneous
  Country: IL (occurrence: IL)
  Receive Date: 20240410
  Receipt Date: 20240502
  Transmission Date: 20240715
  Serious: Yes (Congenital Anomaly)
  Sender: FDA-Public Use
  Company Number: IL-AMERICAN REGENT INC-2024001214

PATIENT
  Sex: Female

DRUGS (1)
  1. VENOFER [Suspect]
     Active Substance: IRON SUCROSE
     Indication: Product used for unknown indication
     Dosage: FOR 3 MONTHS (200 MG, 3 IN 1 WK)
     Route: 064

REACTIONS (10)
  - Cerebral ventricle dilatation [Unknown]
  - Congenital central nervous system anomaly [Unknown]
  - Atrial septal defect [Unknown]
  - Ventricular septal defect [Unknown]
  - Congenital heart valve disorder [Unknown]
  - Congenital scoliosis [Unknown]
  - Hydrocephalus [Unknown]
  - Infantile spitting up [Unknown]
  - Congenital oesophageal stenosis [Unknown]
  - Foetal exposure during pregnancy [Unknown]
